FAERS Safety Report 5743039-6 (Version None)
Quarter: 2008Q2

REPORT INFORMATION
  Report Type: 
  Country: None (occurrence: None)
  Receive Date: 20080519
  Receipt Date: 20080506
  Transmission Date: 20081010
  Serious: Yes (Other)
  Sender: FDA-Public Use
  Company Number: US-ROCHE-562885

PATIENT
  Age: 49 Year
  Sex: Male

DRUGS (4)
  1. ENFUVIRTIDE [Suspect]
     Route: 065
     Dates: start: 20050301
  2. TIPRANAVIR [Suspect]
     Route: 065
     Dates: start: 20050301
  3. RITONAVIR [Suspect]
     Route: 065
     Dates: start: 20050301
  4. EMTRICITABINE [Suspect]
     Route: 065
     Dates: start: 20050301

REACTIONS (1)
  - HYPERLIPIDAEMIA [None]
